FAERS Safety Report 8484637-9 (Version None)
Quarter: 2012Q3

REPORT INFORMATION
  Report Type: 
  Country: None (occurrence: None)
  Receive Date: 20120703
  Receipt Date: 20120330
  Transmission Date: 20120928
  Serious: No
  Sender: FDA-Public Use
  Company Number: US-TEVA-331247USA

PATIENT
  Sex: Male

DRUGS (3)
  1. NUVIGIL [Suspect]
     Dosage: HALF TAB
     Route: 048
  2. OTHER MEDICATION (NOS) [Concomitant]
  3. THYROID MEDICATION (NOS) [Concomitant]

REACTIONS (2)
  - POOR QUALITY SLEEP [None]
  - MALAISE [None]
